FAERS Safety Report 9687079 (Version 1)
Quarter: 2013Q4

REPORT INFORMATION
  Report Type: Spontaneous
  Country: US (occurrence: US)
  Receive Date: 20131113
  Receipt Date: 20131113
  Transmission Date: 20140711
  Serious: Yes (Other)
  Sender: FDA-Public Use
  Company Number: US-B.I. PHARMACEUTICALS,INC./RIDGEFIELD-2013-BI-35809BP

PATIENT
  Sex: Female
  Weight: 113.4 kg

DRUGS (1)
  1. MOBIC [Suspect]
     Indication: ARTHRITIS

REACTIONS (3)
  - Arthritis [Unknown]
  - Drug ineffective [Unknown]
  - Pain [Unknown]
